FAERS Safety Report 17664565 (Version 2)
Quarter: 2020Q2

REPORT INFORMATION
  Report Type: Spontaneous
  Country: US (occurrence: US)
  Receive Date: 20200414
  Receipt Date: 20200526
  Transmission Date: 20200713
  Serious: No
  Sender: FDA-Public Use
  Company Number: US-MYLANLABS-2020M1035675

PATIENT
  Sex: Female
  Weight: 53.52 kg

DRUGS (3)
  1. LIDOCAINE PATCH [Suspect]
     Active Substance: LIDOCAINE
     Indication: ARTHRITIS
     Dosage: UNK
  2. LIDOCAINE PATCH [Suspect]
     Active Substance: LIDOCAINE
     Indication: FIBROMYALGIA
     Dosage: UNK
  3. LIDOCAINE PATCH [Suspect]
     Active Substance: LIDOCAINE
     Indication: PAIN
     Dosage: 5 PERCENT
     Route: 003
     Dates: start: 1993

REACTIONS (4)
  - Off label use [Unknown]
  - Wrong technique in product usage process [Not Recovered/Not Resolved]
  - Product adhesion issue [Not Recovered/Not Resolved]
  - Product quality issue [Not Recovered/Not Resolved]
